FAERS Safety Report 10146431 (Version 1)
Quarter: 2014Q2

REPORT INFORMATION
  Report Type: Spontaneous
  Country: CL (occurrence: CL)
  Receive Date: 20140501
  Receipt Date: 20140501
  Transmission Date: 20141212
  Serious: Yes (Other)
  Sender: FDA-Public Use
  Company Number: CL-PFIZER INC-2014117747

PATIENT
  Age: 78 Year
  Sex: Female

DRUGS (4)
  1. XALATAN [Suspect]
     Indication: GLAUCOMA
     Dosage: 1 GTT, 1X/DAY
     Route: 047
     Dates: start: 2012
  2. AMLODIPINE [Concomitant]
  3. LOSARTAN [Concomitant]
  4. PHENTERMINE [Concomitant]

REACTIONS (3)
  - Pneumonia [Unknown]
  - Cholelithiasis [Unknown]
  - Cough [Not Recovered/Not Resolved]
